FAERS Safety Report 10540270 (Version 1)
Quarter: 2014Q4

REPORT INFORMATION
  Report Type: Spontaneous
  Country: US (occurrence: None)
  Receive Date: 20141023
  Receipt Date: 20141023
  Transmission Date: 20150529
  Serious: Yes (Disabling)
  Sender: FDA-Public Use
  Company Number: None

PATIENT
  Age: 66 Year
  Sex: Male
  Weight: 117.94 kg

DRUGS (2)
  1. GLIPYZIDE [Suspect]
     Active Substance: GLIPIZIDE
     Indication: TYPE 2 DIABETES MELLITUS
     Dosage: 1  TWICE DAILY
     Dates: start: 20140915, end: 20141010
  2. ASPIRIN. [Concomitant]
     Active Substance: ASPIRIN

REACTIONS (3)
  - Retching [None]
  - Dysphonia [None]
  - Cough [None]

NARRATIVE: CASE EVENT DATE: 20140915
